FAERS Safety Report 6640368-9 (Version None)
Quarter: 2010Q1

REPORT INFORMATION
  Report Type: 
  Country: None (occurrence: None)
  Receive Date: 20100303
  Receipt Date: 20090106
  Transmission Date: 20100710
  Serious: Yes (Hospitalization)
  Sender: FDA-Public Use
  Company Number: 606552

PATIENT
  Age: 71 Year
  Sex: Female
  Weight: 57.6 kg

DRUGS (3)
  1. BONIVA [Suspect]
     Indication: OSTEOPOROSIS
     Dosage: 3 MG INTRAVENOUS
     Route: 042
     Dates: start: 20081217, end: 20081217
  2. ZEGERID (OMEPRAZOLE) [Concomitant]
  3. ASACOL [Concomitant]

REACTIONS (5)
  - CELLULITIS [None]
  - GRIP STRENGTH DECREASED [None]
  - INDURATION [None]
  - INJECTION SITE EXTRAVASATION [None]
  - PARAESTHESIA [None]
